FAERS Safety Report 4940643-X (Version None)
Quarter: 2006Q1

REPORT INFORMATION
  Report Type: 
  Country: None (occurrence: None)
  Receive Date: 20060206
  Receipt Date: 20050304
  Transmission Date: 20060701
  Serious: Yes (Hospitalization)
  Sender: FDA-Public Use
  Company Number: MEDI-0002912

PATIENT
  Age: 79 Year
  Sex: Male
  Weight: 78.4723 kg

DRUGS (10)
  1. ETHYOL [Suspect]
     Indication: RADIOTHERAPY
     Dosage: 500 MG, 5 IN 1 WK, SUBCUTANEOUS
     Route: 058
     Dates: start: 20050120, end: 20050208
  2. RADIATION THERAPY [Concomitant]
  3. TAXOL [Concomitant]
  4. CARBOPLATIN [Concomitant]
  5. HCTZ (HYDROCHLOROTHIAZIDE) [Concomitant]
  6. ALLOPURINOL [Concomitant]
  7. FOLIC ACID [Concomitant]
  8. COUMADIN [Concomitant]
  9. VALIUM [Concomitant]
  10. COMPAZINE [Concomitant]

REACTIONS (23)
  - CHILLS [None]
  - COUGH [None]
  - DYSPHAGIA [None]
  - ERYTHEMA [None]
  - FATIGUE [None]
  - HYPOTENSION [None]
  - INJECTION SITE REACTION [None]
  - MALAISE [None]
  - MUCOSAL EROSION [None]
  - MUCOSAL INFLAMMATION [None]
  - NIGHT SWEATS [None]
  - NIKOLSKY'S SIGN [None]
  - OEDEMA PERIPHERAL [None]
  - PHARYNGOLARYNGEAL PAIN [None]
  - PRURITUS [None]
  - PULMONARY CONGESTION [None]
  - PYREXIA [None]
  - RASH ERYTHEMATOUS [None]
  - SKIN EXFOLIATION [None]
  - SKIN INJURY [None]
  - SKIN LESION [None]
  - STEVENS-JOHNSON SYNDROME [None]
  - TUMOUR NECROSIS [None]
